FAERS Safety Report 10034324 (Version 1)
Quarter: 2014Q1

REPORT INFORMATION
  Report Type: Spontaneous
  Country: US (occurrence: None)
  Receive Date: 20140324
  Receipt Date: 20140324
  Transmission Date: 20141002
  Serious: Yes (Life-Threatening, Hospitalization)
  Sender: FDA-Public Use
  Company Number: None

PATIENT
  Age: 54 Year
  Sex: Female
  Weight: 77.11 kg

DRUGS (2)
  1. ROPINIROLE [Suspect]
     Indication: RESTLESS LEGS SYNDROME
     Dosage: 3 PILLS AT BEDTIME TAKEN BY MOUTH
     Route: 048
     Dates: start: 20100601, end: 20110110
  2. ROPINIROLE [Suspect]
     Indication: RESTLESS LEGS SYNDROME
     Dosage: 3 PILLS AT BEDTIME TAKEN BY MOUTH
     Route: 048
     Dates: start: 20100601, end: 20110110

REACTIONS (6)
  - Loss of consciousness [None]
  - Road traffic accident [None]
  - Blood pressure decreased [None]
  - Burns second degree [None]
  - Traumatic haematoma [None]
  - Drug ineffective [None]
